FAERS Safety Report 13319723 (Version 1)
Quarter: 2017Q1

REPORT INFORMATION
  Report Type: Spontaneous
  Country: US (occurrence: US)
  Receive Date: 20170309
  Receipt Date: 20170309
  Transmission Date: 20170428
  Serious: No
  Sender: FDA-Public Use
  Company Number: US-TEVA-663020USA

PATIENT
  Sex: Female

DRUGS (4)
  1. BUSPIRONE [Suspect]
     Active Substance: BUSPIRONE HYDROCHLORIDE
     Indication: ANXIETY
     Dosage: 10 MILLIGRAM DAILY;
  2. BUSPIRONE [Suspect]
     Active Substance: BUSPIRONE HYDROCHLORIDE
     Dosage: 15 MILLIGRAM DAILY;
  3. BUSPIRONE [Suspect]
     Active Substance: BUSPIRONE HYDROCHLORIDE
     Dosage: 10 MILLIGRAM DAILY;
  4. BUSPIRONE [Suspect]
     Active Substance: BUSPIRONE HYDROCHLORIDE
     Indication: VERTIGO
     Dosage: 5 MILLIGRAM DAILY;

REACTIONS (2)
  - Somnolence [Unknown]
  - Dizziness [Unknown]
